FAERS Safety Report 8841738 (Version 1)
Quarter: 2012Q4

REPORT INFORMATION
  Report Type: Spontaneous
  Country: US (occurrence: None)
  Receive Date: 20121011
  Receipt Date: 20121011
  Transmission Date: 20130627
  Serious: Yes (Hospitalization, Other)
  Sender: FDA-Public Use
  Company Number: JPI-P-025408

PATIENT
  Age: 33 Year
  Sex: Male
  Weight: 104.33 kg

DRUGS (2)
  1. XYREM [Suspect]
     Indication: NARCOLEPSY
     Dosage: (4.5 mg 2 in 1 D)
     Route: 048
     Dates: start: 20120217, end: 20120822
  2. AMPHETAMINE, DEXTROAMPHETAMINE MIXED SALTS [Concomitant]

REACTIONS (5)
  - Road traffic accident [None]
  - Compartment syndrome [None]
  - Pain in extremity [None]
  - Limb injury [None]
  - Gait disturbance [None]
